FAERS Safety Report 12931307 (Version 1)
Quarter: 2016Q4

REPORT INFORMATION
  Report Type: Spontaneous
  Country: US (occurrence: US)
  Receive Date: 20161110
  Receipt Date: 20161110
  Transmission Date: 20170207
  Serious: No
  Sender: FDA-Public Use
  Company Number: US-JAZZ-2016-US-018166

PATIENT
  Sex: Female

DRUGS (38)
  1. XYREM [Suspect]
     Active Substance: SODIUM OXYBATE
     Dosage: 4.5 G, BID
     Route: 048
     Dates: start: 201209
  2. BENADRYL [Concomitant]
     Active Substance: DIPHENHYDRAMINE HYDROCHLORIDE
  3. ZINC ACETATE [Concomitant]
     Active Substance: ZINC ACETATE
  4. PHENERGAN [Concomitant]
     Active Substance: PROMETHAZINE HYDROCHLORIDE
  5. PROMETHAZINE [Concomitant]
     Active Substance: PROMETHAZINE\PROMETHAZINE HYDROCHLORIDE
  6. CHROMIUM PICOLINAT [Concomitant]
  7. MAGNESIUM [Concomitant]
     Active Substance: MAGNESIUM
  8. IODINE. [Concomitant]
     Active Substance: IODINE
  9. XYREM [Suspect]
     Active Substance: SODIUM OXYBATE
     Indication: NARCOLEPSY
     Dosage: 2.25 G, BID
     Route: 048
     Dates: start: 201203, end: 201204
  10. PROPRANOLOL [Concomitant]
     Active Substance: PROPRANOLOL\PROPRANOLOL HYDROCHLORIDE
  11. TORADOL [Concomitant]
     Active Substance: KETOROLAC TROMETHAMINE
  12. TRAMADOL HCL [Concomitant]
     Active Substance: TRAMADOL HYDROCHLORIDE
  13. DEMEROL [Concomitant]
     Active Substance: MEPERIDINE HYDROCHLORIDE
  14. TRAZODONE [Concomitant]
     Active Substance: TRAZODONE HYDROCHLORIDE
  15. VITAMIN D3 [Concomitant]
     Active Substance: CHOLECALCIFEROL
  16. MELATONIN [Concomitant]
     Active Substance: MELATONIN
  17. COMPAZINE                          /00013302/ [Concomitant]
     Active Substance: PROCHLORPERAZINE EDISYLATE
  18. VITAMIN C [Concomitant]
     Active Substance: ASCORBIC ACID
  19. ATIVAN [Concomitant]
     Active Substance: LORAZEPAM
  20. VERAPAMIL [Concomitant]
     Active Substance: VERAPAMIL HYDROCHLORIDE
  21. XANAX [Concomitant]
     Active Substance: ALPRAZOLAM
  22. KLONOPIN [Concomitant]
     Active Substance: CLONAZEPAM
  23. PERCOCET                           /00446701/ [Concomitant]
     Active Substance: ACETAMINOPHEN\OXYCODONE HYDROCHLORIDE\OXYCODONE TEREPHTHALATE
  24. WESTHROID [Concomitant]
     Active Substance: THYROGLOBULIN
  25. METHOCARBAMOL. [Concomitant]
     Active Substance: METHOCARBAMOL
  26. CALCIUM CITRATE WITH VITAMIN D3 [Concomitant]
  27. FOLIC ACID. [Concomitant]
     Active Substance: FOLIC ACID
  28. NATURE-THROID [Concomitant]
     Active Substance: THYROID, PORCINE
  29. SELENIUM [Concomitant]
     Active Substance: SELENIUM
  30. ALBUTEROL SULFATE. [Concomitant]
     Active Substance: ALBUTEROL SULFATE
  31. MINIVELLE [Concomitant]
     Active Substance: ESTRADIOL
  32. SPIRONOLACTONE. [Concomitant]
     Active Substance: SPIRONOLACTONE
  33. VITAMIN K [Concomitant]
     Active Substance: PHYTONADIONE
  34. ZINC GLUCONATE [Concomitant]
     Active Substance: ZINC GLUCONATE
  35. XYREM [Suspect]
     Active Substance: SODIUM OXYBATE
     Dosage: 3 G, BID
     Route: 048
     Dates: start: 201204, end: 201209
  36. CALAN [Concomitant]
     Active Substance: VERAPAMIL HYDROCHLORIDE
  37. MAGNESIUM CITRATE. [Concomitant]
     Active Substance: MAGNESIUM CITRATE
  38. CALCARB [Concomitant]

REACTIONS (1)
  - Nasopharyngitis [Not Recovered/Not Resolved]
